FAERS Safety Report 7441608 (Version 2)
Quarter: 2013Q3

REPORT INFORMATION
  Report Type: Spontaneous
  Country: BR (occurrence: BR)
  Receive Date: 20100629
  Receipt Date: 20130924
  Transmission Date: 20140515
  Serious: Yes (Other)
  Sender: FDA-Public Use
  Company Number: BR-SANOFI-AVENTIS-2010SA036497

PATIENT
  Age: 67 Year
  Sex: Male
  Weight: 91 kg

DRUGS (18)
  1. LANTUS [Suspect]
     Indication: TYPE 2 DIABETES MELLITUS
     Route: 058
     Dates: start: 2006, end: 2010
  2. LANTUS [Suspect]
     Indication: TYPE 2 DIABETES MELLITUS
     Route: 058
     Dates: start: 2010
  3. LANTUS [Suspect]
     Indication: TYPE 2 DIABETES MELLITUS
     Dosage: DOSE: 60 IU IN MORNING AND 20 IU AT NIGHT
     Route: 058
  4. AUTOPEN 24 [Suspect]
     Indication: DEVICE THERAPY
  5. NOVOLIN [Concomitant]
     Indication: TYPE 2 DIABETES MELLITUS
     Route: 058
     Dates: start: 20100324
  6. OMEPRAZOLE [Concomitant]
     Indication: CARDIAC DISORDER
     Route: 048
     Dates: start: 20100521
  7. PURAN T4 [Concomitant]
     Indication: THYROID DISORDER
     Route: 048
     Dates: start: 20100521
  8. DIAMICRON [Concomitant]
     Route: 048
     Dates: start: 20100521
  9. VALSARTAN [Concomitant]
     Indication: HYPERTENSION
     Route: 048
     Dates: start: 20100521
  10. LASIX [Concomitant]
     Indication: RENAL DISORDER
     Route: 048
     Dates: start: 20100521
  11. VITAMIN B COMPLEX [Concomitant]
     Indication: CARDIAC DISORDER
     Route: 048
     Dates: start: 20100521
  12. KETOROLAC [Concomitant]
     Route: 048
     Dates: start: 20100521
  13. CARVEDILOL [Concomitant]
     Indication: CARDIAC DISORDER
     Route: 048
     Dates: start: 20100521
  14. METFORMIN HYDROCHLORIDE [Concomitant]
     Indication: CARDIAC DISORDER
     Route: 048
     Dates: start: 20100521
  15. SOMALGIN CARDIO [Concomitant]
     Route: 048
     Dates: start: 20100521
  16. LIPITOR [Concomitant]
     Route: 048
     Dates: start: 20100521
  17. ZETIA [Concomitant]
     Route: 048
  18. CITALOR [Concomitant]
     Indication: DIABETES MELLITUS
     Route: 048
     Dates: start: 20100521

REACTIONS (5)
  - Coronary artery disease [Recovering/Resolving]
  - Angiopathy [Not Recovered/Not Resolved]
  - Cardiac disorder [Not Recovered/Not Resolved]
  - Visual impairment [Unknown]
  - Blood glucose increased [Not Recovered/Not Resolved]
